FAERS Safety Report 17434264 (Version 5)
Quarter: 2020Q2

REPORT INFORMATION
  Report Type: Spontaneous
  Country: US (occurrence: US)
  Receive Date: 20200219
  Receipt Date: 20200529
  Transmission Date: 20200713
  Serious: No
  Sender: FDA-Public Use
  Company Number: US-PFIZER INC-2020069428

PATIENT
  Age: 53 Year
  Sex: Female
  Weight: 107 kg

DRUGS (2)
  1. LYRICA [Suspect]
     Active Substance: PREGABALIN
     Dosage: 100 MG, 2X/DAY
  2. LYRICA [Suspect]
     Active Substance: PREGABALIN
     Indication: FIBROMYALGIA
     Dosage: 75 MG, UNK

REACTIONS (5)
  - Arthralgia [Unknown]
  - Intentional product use issue [Unknown]
  - Pain in extremity [Recovering/Resolving]
  - Musculoskeletal pain [Unknown]
  - Osteoarthritis [Unknown]
